FAERS Safety Report 15628181 (Version 1)
Quarter: 2018Q4

REPORT INFORMATION
  Report Type: Spontaneous
  Country: US (occurrence: US)
  Receive Date: 20181116
  Receipt Date: 20181116
  Transmission Date: 20190205
  Serious: No
  Sender: FDA-Public Use
  Company Number: US-MYLANLABS-2018M1060967

PATIENT
  Sex: Female
  Weight: 100 kg

DRUGS (3)
  1. VERAPAMIL [Suspect]
     Active Substance: VERAPAMIL HYDROCHLORIDE
     Indication: PERSISTENT POSTURAL-PERCEPTUAL DIZZINESS
     Dosage: UNK
     Route: 048
     Dates: start: 20180724
  2. TOPAMAX [Suspect]
     Active Substance: TOPIRAMATE
     Indication: MIGRAINE
     Dosage: UNK
  3. VERAPAMIL [Suspect]
     Active Substance: VERAPAMIL HYDROCHLORIDE
     Indication: VESTIBULAR MIGRAINE
     Dosage: UNK
     Route: 048
     Dates: start: 201611, end: 20180617

REACTIONS (4)
  - Hypoaesthesia [Unknown]
  - Off label use [Not Recovered/Not Resolved]
  - Migraine [Unknown]
  - Vertigo [Unknown]
